FAERS Safety Report 6274765-0 (Version None)
Quarter: 2009Q3

REPORT INFORMATION
  Report Type: 
  Country: None (occurrence: None)
  Receive Date: 20090717
  Receipt Date: 20090706
  Transmission Date: 20100115
  Serious: Yes (Hospitalization)
  Sender: FDA-Public Use
  Company Number: B0583388A

PATIENT
  Age: 50 Year
  Sex: Female

DRUGS (10)
  1. LAMOTRIGINE [Suspect]
     Indication: DRUG USE FOR UNKNOWN INDICATION
  2. LEVOTHYROXINE SODIUM [Concomitant]
  3. LITHIUM SALT [Concomitant]
  4. DILTIAZEM HYDROCHLORIDE [Concomitant]
  5. CLONAZEPAM [Concomitant]
  6. ZOLPIDEM [Concomitant]
  7. RISPERIDONE [Concomitant]
  8. OXYCODONE [Concomitant]
  9. DIPHENHYPDRAMINE [Concomitant]
  10. ACETAMINOPHEN [Concomitant]

REACTIONS (6)
  - ALANINE AMINOTRANSFERASE INCREASED [None]
  - ASPARTATE AMINOTRANSFERASE INCREASED [None]
  - BLOOD ALKALINE PHOSPHATASE INCREASED [None]
  - MENINGITIS ASEPTIC [None]
  - PHOTOPHOBIA [None]
  - SUICIDAL IDEATION [None]
